FAERS Safety Report 6336179-4 (Version None)
Quarter: 2009Q3

REPORT INFORMATION
  Report Type: 
  Country: None (occurrence: None)
  Receive Date: 20090831
  Receipt Date: 20090831
  Transmission Date: 20100115
  Serious: Yes (Death)
  Sender: FDA-Public Use
  Company Number: None

PATIENT
  Sex: Male
  Weight: 106.4 kg

DRUGS (22)
  1. TEMOZOLOMIDE [Suspect]
     Indication: GLIOBLASTOMA
     Dosage: 230 MG DAILY ORAL
     Route: 048
     Dates: start: 20090609, end: 20090629
  2. TEMOZOLOMIDE [Suspect]
     Indication: GLIOBLASTOMA
     Dosage: 230 MG DAILY ORAL
     Route: 048
     Dates: start: 20090706, end: 20090715
  3. TEMOZOLOMIDE [Suspect]
     Indication: GLIOBLASTOMA
     Dates: start: 20090609, end: 20090629
  4. TEMOZOLOMIDE [Suspect]
     Indication: GLIOBLASTOMA
     Dates: start: 20090706, end: 20090715
  5. TEMOZOLOMIDE [Suspect]
     Indication: GLIOBLASTOMA
     Dates: start: 20090609, end: 20090629
  6. TEMOZOLOMIDE [Suspect]
     Indication: GLIOBLASTOMA
     Dates: start: 20090706, end: 20090715
  7. TEMOZOLOMIDE [Suspect]
  8. KEPPRA [Concomitant]
  9. DECADRON [Concomitant]
  10. VITAMIN B-12 [Concomitant]
  11. CENTRUM SILVER [Concomitant]
  12. CARTIA XT [Concomitant]
  13. AVAPRO [Concomitant]
  14. LANTIX INSULIN [Concomitant]
  15. NOVOLOG [Concomitant]
  16. BENADRYL [Concomitant]
  17. CELEXA [Concomitant]
  18. COUMADIN [Concomitant]
  19. ONDANSETRON [Concomitant]
  20. COMPAZINE [Concomitant]
  21. BACTRIM DS [Concomitant]
  22. BACTRIM DS [Concomitant]

REACTIONS (1)
  - DEATH [None]
